FAERS Safety Report 6502448-8 (Version None)
Quarter: 2009Q4

REPORT INFORMATION
  Report Type: 
  Country: None (occurrence: None)
  Receive Date: 20091214
  Receipt Date: 20091130
  Transmission Date: 20100525
  Serious: Yes (Hospitalization)
  Sender: FDA-Public Use
  Company Number: 2009SP038905

PATIENT
  Age: 43 Year
  Sex: Male

DRUGS (4)
  1. REXER (MIRTAZAPINE) (MIRTAZAPINE) [Suspect]
     Indication: PERSONALITY DISORDER
     Dosage: 15 MG;QD;PO
     Route: 048
  2. ZYPREXA [Suspect]
     Indication: PERSONALITY DISORDER
     Dosage: 15 MG;QD;PO
     Route: 048
  3. RIVOTRIL [Concomitant]
  4. XERISTAR [Concomitant]

REACTIONS (7)
  - BLOOD PRESSURE INCREASED [None]
  - GLYCOSYLATED HAEMOGLOBIN INCREASED [None]
  - HIGH DENSITY LIPOPROTEIN DECREASED [None]
  - HYPERGLYCAEMIA [None]
  - HYPERTRIGLYCERIDAEMIA [None]
  - POLYDIPSIA [None]
  - WEIGHT INCREASED [None]
